FAERS Safety Report 9392682 (Version 1)
Quarter: 2013Q3

REPORT INFORMATION
  Report Type: Spontaneous
  Country: US (occurrence: None)
  Receive Date: 20130708
  Receipt Date: 20130708
  Transmission Date: 20140515
  Serious: Yes (Hospitalization)
  Sender: FDA-Public Use
  Company Number: None

PATIENT
  Age: 17 Year
  Sex: Male
  Weight: 77 kg

DRUGS (5)
  1. MERCAPTOPURINE [Suspect]
     Dates: start: 20130626
  2. METHOTREXATE [Suspect]
     Dates: start: 20130626
  3. PREDNISONE [Suspect]
     Dates: start: 20130630
  4. VINCRISTINE SULFATE [Suspect]
     Dates: start: 20130626
  5. SULFAMETHOXAZOLE - TM DS 800-160 [Concomitant]

REACTIONS (2)
  - Pancreatitis [None]
  - Pleural effusion [None]
